FAERS Safety Report 25633344 (Version 2)
Quarter: 2025Q3

REPORT INFORMATION
  Report Type: Spontaneous
  Country: GB (occurrence: GB)
  Receive Date: 20250801
  Receipt Date: 20250819
  Transmission Date: 20251020
  Serious: Yes (Other)
  Sender: RANBAXY
  Company Number: GB-SUN PHARMACEUTICAL INDUSTRIES LTD-2025R1-520207

PATIENT
  Age: 65 Year
  Sex: Female

DRUGS (1)
  1. VECURONIUM [Suspect]
     Active Substance: VECURONIUM BROMIDE
     Indication: General anaesthesia
     Route: 065

REACTIONS (2)
  - Angioedema [Unknown]
  - Sialodochitis fibrinosa [Unknown]
